FAERS Safety Report 8415813-9 (Version None)
Quarter: 2012Q2

REPORT INFORMATION
  Report Type: 
  Country: None (occurrence: None)
  Receive Date: 20120606
  Receipt Date: 20120529
  Transmission Date: 20120825
  Serious: Yes (Hospitalization)
  Sender: FDA-Public Use
  Company Number: US-ASTRAZENECA-2012SE34498

PATIENT
  Sex: Female
  Weight: 235.9 kg

DRUGS (5)
  1. MIRALAX [Concomitant]
     Indication: LAXATIVE SUPPORTIVE CARE
  2. NEXIUM [Suspect]
     Indication: GASTROOESOPHAGEAL REFLUX DISEASE
     Route: 048
  3. CIPROFLOXACIN [Concomitant]
  4. NEXIUM [Suspect]
     Indication: GASTRIC DISORDER
     Route: 048
  5. NEXIUM [Suspect]
     Route: 048

REACTIONS (11)
  - PYREXIA [None]
  - SINUSITIS [None]
  - CHILLS [None]
  - BLOOD MAGNESIUM DECREASED [None]
  - DIABETES MELLITUS [None]
  - HEADACHE [None]
  - DIARRHOEA [None]
  - CARDIAC DISORDER [None]
  - BLOOD PRESSURE ABNORMAL [None]
  - ASTHMA [None]
  - OBESITY [None]
